FAERS Safety Report 8551961 (Version 3)
Quarter: 2012Q4

REPORT INFORMATION
  Report Type: 
  Country: US (occurrence: US)
  Receive Date: 20120508
  Receipt Date: 20120904
  Transmission Date: 20130627
  Serious: Yes (Other)
  Sender: FDA-Public Use
  Company Number: US-JNJFOC-20120414304

PATIENT
  Age: 64 None
  Sex: Female
  Weight: 56.7 kg

DRUGS (21)
  1. REMICADE [Suspect]
     Indication: COLITIS ULCERATIVE
     Route: 042
     Dates: start: 20120426
  2. REMICADE [Suspect]
     Indication: COLITIS ULCERATIVE
     Route: 042
     Dates: start: 2012, end: 2012
  3. REMICADE [Suspect]
     Indication: COLITIS ULCERATIVE
     Route: 042
     Dates: start: 201201
  4. REMICADE [Suspect]
     Indication: COLITIS ULCERATIVE
     Route: 042
     Dates: start: 2008
  5. REMICADE [Suspect]
     Indication: COLITIS ULCERATIVE
     Route: 042
     Dates: start: 20070426
  6. SYNTHROID [Concomitant]
     Indication: THYROID DISORDER
     Route: 048
  7. CALCIUM [Concomitant]
     Indication: MEDICAL DIET
     Route: 048
  8. CHOLECALCIFEROL [Concomitant]
     Indication: MEDICAL DIET
     Route: 048
  9. VESICARE [Concomitant]
     Indication: INCONTINENCE
     Route: 048
  10. VESICARE [Concomitant]
     Indication: INCONTINENCE
     Route: 048
  11. FOSAMAX [Concomitant]
     Indication: OSTEOPOROSIS
     Route: 048
  12. VITAMIN D [Concomitant]
     Indication: MEDICAL DIET
     Route: 048
  13. NUVIGIL [Concomitant]
     Route: 065
  14. VENLAFAXINE [Concomitant]
     Route: 065
  15. COLAZAL [Concomitant]
     Dosage: 9 pills
     Route: 065
  16. COLAZAL [Concomitant]
     Dosage: 2 pills a day
     Route: 065
  17. COLAZAL [Concomitant]
     Dosage: 8 tablets
     Route: 065
  18. ROPINIROLE [Concomitant]
     Dosage: 2 pills a day
     Route: 065
  19. CALCIUM 600+D [Concomitant]
     Indication: MEDICAL DIET
     Route: 048
  20. L-THYROXINE [Concomitant]
     Route: 065
  21. MULTIPLE VITAMIN [Concomitant]
     Route: 065

REACTIONS (7)
  - Gastrointestinal infection [Recovered/Resolved]
  - Anxiety [Not Recovered/Not Resolved]
  - Nervous system disorder [Recovered/Resolved]
  - Restless legs syndrome [Not Recovered/Not Resolved]
  - Somnolence [Not Recovered/Not Resolved]
  - Drug effect decreased [Recovered/Resolved]
  - Nervousness [Not Recovered/Not Resolved]
